FAERS Safety Report 15207297 (Version 3)
Quarter: 2018Q3

REPORT INFORMATION
  Report Type: Report from Study
  Country: IT (occurrence: IT)
  Receive Date: 20180727
  Receipt Date: 20180820
  Transmission Date: 20181010
  Serious: Yes (Hospitalization, Other)
  Sender: FDA-Public Use
  Company Number: IT-CELGENEUS-ITA-20180705811

PATIENT
  Age: 49 Year
  Sex: Male
  Weight: 52 kg

DRUGS (5)
  1. METILPREDNISONE [Concomitant]
     Indication: STEROID THERAPY
     Dosage: 8 MILLIGRAM
     Route: 048
     Dates: start: 20180411, end: 20180720
  2. PANTOPRAZOLE [Concomitant]
     Active Substance: PANTOPRAZOLE
     Indication: GASTRITIS PROPHYLAXIS
     Dosage: 80 MILLIGRAM
     Route: 048
     Dates: start: 20180407, end: 20180720
  3. ABRAXANE [Suspect]
     Active Substance: PACLITAXEL
     Indication: DUCTAL ADENOCARCINOMA OF PANCREAS
     Dosage: 10.7143 MILLIGRAM/SQ. METER
     Route: 041
     Dates: start: 20180404, end: 20180711
  4. GEMCITABINE [Suspect]
     Active Substance: GEMCITABINE\GEMCITABINE HYDROCHLORIDE
     Indication: DUCTAL ADENOCARCINOMA OF PANCREAS
     Dosage: 85.7143 MILLIGRAM/SQ. METER
     Route: 041
     Dates: start: 20180404, end: 20180711
  5. METILPREDNISONE [Concomitant]
     Dosage: 8 MILLIGRAM
     Route: 048
     Dates: start: 20180716, end: 20180719

REACTIONS (4)
  - Abdominal pain [Not Recovered/Not Resolved]
  - Ascites [Not Recovered/Not Resolved]
  - General physical health deterioration [Not Recovered/Not Resolved]
  - Nausea [Not Recovered/Not Resolved]

NARRATIVE: CASE EVENT DATE: 20180706
